FAERS Safety Report 5146903-4 (Version None)
Quarter: 2006Q4

REPORT INFORMATION
  Report Type: 
  Country: None (occurrence: None)
  Receive Date: 20061109
  Receipt Date: 20061031
  Transmission Date: 20070319
  Serious: Yes (Hospitalization)
  Sender: FDA-Public Use
  Company Number: GB-GILEAD-2006-0010592

PATIENT
  Age: 57 Year
  Sex: Female

DRUGS (2)
  1. TRUVADA [Suspect]
  2. ACYCLOVIR [Concomitant]
     Route: 042

REACTIONS (4)
  - BRAIN NEOPLASM [None]
  - CONVULSION [None]
  - DRUG INTERACTION [None]
  - LOSS OF CONSCIOUSNESS [None]
